FAERS Safety Report 15539297 (Version 2)
Quarter: 2018Q4

REPORT INFORMATION
  Report Type: Spontaneous
  Country: AU (occurrence: AU)
  Receive Date: 20181022
  Receipt Date: 20181025
  Transmission Date: 20190205
  Serious: Yes (Hospitalization, Disabling, Other)
  Sender: FDA-Public Use
  Company Number: PHHY2018AU133121

PATIENT
  Age: 68 Year
  Sex: Female
  Weight: 100 kg

DRUGS (2)
  1. ZOMETA [Suspect]
     Active Substance: ZOLEDRONIC ACID
     Indication: BREAST CANCER
     Dosage: UNK
     Route: 065
     Dates: start: 20050601, end: 20130612
  2. ZOMETA [Suspect]
     Active Substance: ZOLEDRONIC ACID
     Indication: METASTASES TO BONE
     Dosage: 20 MG, QMO
     Route: 042
     Dates: start: 200505, end: 201305

REACTIONS (10)
  - Dysgeusia [Unknown]
  - Osteonecrosis of jaw [Not Recovered/Not Resolved]
  - Oral infection [Unknown]
  - Oral pain [Unknown]
  - Toothache [Unknown]
  - Mouth swelling [Unknown]
  - Tooth loss [Unknown]
  - Quality of life decreased [Unknown]
  - Abscess oral [Unknown]
  - Gingival pain [Unknown]

NARRATIVE: CASE EVENT DATE: 20130609
